FAERS Safety Report 15545526 (Version 1)
Quarter: 2018Q4

REPORT INFORMATION
  Report Type: Spontaneous
  Country: US (occurrence: US)
  Receive Date: 20181024
  Receipt Date: 20181024
  Transmission Date: 20190205
  Serious: No
  Sender: FDA-Public Use
  Company Number: US-GLAXOSMITHKLINE-US2018188010

PATIENT
  Age: 73 Year
  Sex: Female

DRUGS (1)
  1. PREVACID 24 HR [Suspect]
     Active Substance: LANSOPRAZOLE
     Indication: GASTRIC DISORDER
     Dosage: 1 UNK, BID

REACTIONS (4)
  - Drug effective for unapproved indication [Unknown]
  - Incorrect product administration duration [Unknown]
  - Prescribed overdose [Unknown]
  - Off label use [Unknown]
